FAERS Safety Report 8060375-1 (Version None)
Quarter: 2012Q1

REPORT INFORMATION
  Report Type: 
  Country: None (occurrence: None)
  Receive Date: 20120119
  Receipt Date: 20120119
  Transmission Date: 20120608
  Serious: Yes (Hospitalization)
  Sender: FDA-Public Use
  Company Number: None

PATIENT
  Age: 61 Year
  Sex: Female
  Weight: 71.1 kg

DRUGS (14)
  1. ONDANSETRON HCL [Concomitant]
  2. VICODIN [Concomitant]
  3. ADVAIR DISKUS 100/50 [Concomitant]
  4. LIPITOR [Concomitant]
  5. VANCOMYCIN [Suspect]
     Indication: STAPHYLOCOCCAL INFECTION
     Dosage: 1GM BID VIA PICC   RECENT
  6. OXYCONTIN [Concomitant]
  7. WARFARIN SODIUM [Concomitant]
  8. OMEPRAZOLE [Concomitant]
  9. AMLODIPINE [Concomitant]
  10. CELEBREX [Concomitant]
  11. COLACE [Concomitant]
  12. FEXOFENADINE [Concomitant]
  13. HYDROCHLOROTHIAZIDE [Concomitant]
  14. VALSARTAN [Concomitant]

REACTIONS (7)
  - VOMITING [None]
  - PYREXIA [None]
  - CHILLS [None]
  - NAUSEA [None]
  - LEUKOPENIA [None]
  - RASH [None]
  - PRURITUS [None]
